FAERS Safety Report 8830959 (Version 1)
Quarter: 2012Q4

REPORT INFORMATION
  Report Type: 
  Country: US (occurrence: US)
  Receive Date: 20121008
  Receipt Date: 20121008
  Transmission Date: 20130627
  Serious: Yes (Hospitalization)
  Sender: FDA-Public Use
  Company Number: US-PFIZER INC-2012246152

PATIENT
  Age: 65 Year
  Sex: Female

DRUGS (1)
  1. VFEND [Suspect]
     Indication: PNEUMONIA FUNGAL
     Dosage: 1200 mg, 2x/day
     Dates: start: 20120523

REACTIONS (1)
  - Blood disorder [Unknown]
